FAERS Safety Report 13193505 (Version 1)
Quarter: 2017Q1

REPORT INFORMATION
  Report Type: Spontaneous
  Country: FR (occurrence: FR)
  Receive Date: 20170207
  Receipt Date: 20170207
  Transmission Date: 20170428
  Serious: Yes (Hospitalization)
  Sender: FDA-Public Use
  Company Number: FR-ASTRAZENECA-2017SE13363

PATIENT
  Age: 21764 Day
  Sex: Female

DRUGS (2)
  1. ANAFRANIL [Suspect]
     Active Substance: CLOMIPRAMINE HYDROCHLORIDE
     Route: 048
     Dates: start: 20161222, end: 20161222
  2. XEROQUEL [Suspect]
     Active Substance: QUETIAPINE FUMARATE
     Route: 048
     Dates: start: 20161222, end: 20161222

REACTIONS (7)
  - Oxygen saturation decreased [Recovered/Resolved]
  - Mydriasis [Recovered/Resolved]
  - Toxicity to various agents [Unknown]
  - Vomiting [Recovered/Resolved]
  - Tachycardia [Recovered/Resolved]
  - Agitation [Recovered/Resolved]
  - Somnolence [Recovered/Resolved]

NARRATIVE: CASE EVENT DATE: 20161222
